FAERS Safety Report 11135464 (Version 2)
Quarter: 2015Q3

REPORT INFORMATION
  Report Type: Spontaneous
  Country: US (occurrence: None)
  Receive Date: 20150521
  Receipt Date: 20150902
  Transmission Date: 20151125
  Serious: Yes (Hospitalization, Other)
  Sender: FDA-Public Use
  Company Number: PIN-2015-00023

PATIENT
  Sex: Male

DRUGS (1)
  1. PHOTOFRIN [Suspect]
     Active Substance: PORFIMER SODIUM
     Indication: PLEURAL MESOTHELIOMA MALIGNANT
     Route: 042

REACTIONS (15)
  - Hypotension [None]
  - Localised oedema [None]
  - Acute kidney injury [None]
  - Generalised oedema [None]
  - Empyema [None]
  - Respiratory failure [None]
  - Pneumonia [None]
  - Atrial fibrillation [None]
  - Malnutrition [None]
  - Pneumothorax [None]
  - Pleural effusion [None]
  - Nosocomial infection [None]
  - Sepsis [None]
  - Pulmonary air leakage [None]
  - No therapeutic response [None]

NARRATIVE: CASE EVENT DATE: 20141224
